FAERS Safety Report 14636407 (Version 1)
Quarter: 2018Q1

REPORT INFORMATION
  Report Type: Spontaneous
  Country: US (occurrence: US)
  Receive Date: 20180314
  Receipt Date: 20180314
  Transmission Date: 20180509
  Serious: No
  Sender: FDA-Public Use
  Company Number: US-GLENMARK PHARMACEUTICALS-2017GMK030594

PATIENT

DRUGS (3)
  1. MUPIROCIN. [Suspect]
     Active Substance: MUPIROCIN
     Indication: RHINITIS
     Dosage: TID FOR 5 DAYS AND BID FOR 2 DAYS
     Route: 061
     Dates: start: 20171208, end: 20171215
  2. FLUTICASONE PROPIONATE. [Concomitant]
     Active Substance: FLUTICASONE PROPIONATE
     Indication: PRODUCT USED FOR UNKNOWN INDICATION
     Dosage: UNK
     Route: 065
  3. MUPIROCIN. [Suspect]
     Active Substance: MUPIROCIN
     Dosage: UNK

REACTIONS (5)
  - Incorrect route of drug administration [Unknown]
  - Mouth haemorrhage [Unknown]
  - Nasal crusting [Unknown]
  - Epistaxis [Unknown]
  - Incorrect drug administration duration [Unknown]
